FAERS Safety Report 23762525 (Version 1)
Quarter: 2024Q2

REPORT INFORMATION
  Report Type: Spontaneous
  Country: US (occurrence: US)
  Receive Date: 20240419
  Receipt Date: 20240419
  Transmission Date: 20240717
  Serious: No
  Sender: FDA-Public Use
  Company Number: US-PFIZER INC-PV202400050668

PATIENT
  Age: 23 Year
  Sex: Female

DRUGS (1)
  1. CIBINQO [Suspect]
     Active Substance: ABROCITINIB
     Indication: Rash
     Dosage: 100 MG

REACTIONS (2)
  - Off label use [Unknown]
  - Drug ineffective for unapproved indication [Unknown]
